FAERS Safety Report 10192725 (Version 1)
Quarter: 2014Q2

REPORT INFORMATION
  Report Type: Spontaneous
  Country: IT (occurrence: IT)
  Receive Date: 20140523
  Receipt Date: 20140523
  Transmission Date: 20141212
  Serious: Yes (Hospitalization)
  Sender: FDA-Public Use
  Company Number: PHHY2014IT060319

PATIENT
  Age: 84 Year
  Sex: Male

DRUGS (9)
  1. KETOPROFEN [Suspect]
     Indication: PAIN
     Dosage: 1 DF, QD
     Route: 048
     Dates: start: 20140418, end: 20140423
  2. CLEXANE [Concomitant]
     Dosage: 1 DF, UNK
     Route: 058
  3. LASIX [Concomitant]
     Dosage: 25 MG, TIW
  4. DILATREND [Concomitant]
     Dosage: 1 DF, UNK
     Route: 048
  5. TRIATEC [Concomitant]
     Dosage: 3.75 MG, UNK
     Route: 048
  6. KANRENOL [Concomitant]
     Dosage: 0.25 DF, UNK
     Route: 048
  7. URBASON [Concomitant]
     Dosage: 4 MG, UNK
     Route: 048
     Dates: start: 20140418, end: 20140423
  8. LANTUS [Concomitant]
     Dosage: 12 IU, UNK
     Route: 058
  9. CORDARONE [Concomitant]

REACTIONS (5)
  - Atrioventricular block [Unknown]
  - Bifascicular block [Unknown]
  - Hyperkalaemia [Unknown]
  - Metabolic acidosis [Unknown]
  - Renal failure acute [Unknown]
